FAERS Safety Report 15167814 (Version 1)
Quarter: 2018Q3

REPORT INFORMATION
  Report Type: Spontaneous
  Country: DE (occurrence: DE)
  Receive Date: 20180719
  Receipt Date: 20180719
  Transmission Date: 20181010
  Serious: Yes (Other)
  Sender: FDA-Public Use
  Company Number: DE-ELI_LILLY_AND_COMPANY-DE201806004220

PATIENT
  Sex: Female
  Weight: 45 kg

DRUGS (1)
  1. OLUMIANT [Suspect]
     Active Substance: BARICITINIB
     Indication: RHEUMATOID ARTHRITIS
     Dosage: 4 MG, UNK
     Route: 048
     Dates: start: 201712

REACTIONS (7)
  - Chronic kidney disease [Not Recovered/Not Resolved]
  - Anaemia [Recovered/Resolved]
  - Leukopenia [Recovered/Resolved]
  - Scintillating scotoma [Unknown]
  - Cervicobrachial syndrome [Unknown]
  - Alanine aminotransferase increased [Unknown]
  - Dizziness [Unknown]

NARRATIVE: CASE EVENT DATE: 201802
